FAERS Safety Report 6791300-9 (Version None)
Quarter: 2010Q2

REPORT INFORMATION
  Report Type: 
  Country: None (occurrence: None)
  Receive Date: 20100624
  Receipt Date: 20100612
  Transmission Date: 20101027
  Serious: Yes (Hospitalization)
  Sender: FDA-Public Use
  Company Number: US-PFIZER INC-2010060606

PATIENT
  Sex: Female
  Weight: 80.5 kg

DRUGS (7)
  1. SUTENT [Suspect]
     Indication: BLADDER TRANSITIONAL CELL CARCINOMA
     Dosage: 37.5 MG, 1X/DAY
     Route: 048
     Dates: start: 20100311, end: 20100505
  2. TRIAMTERENE AND HYDROCHLOROTHIAZIDE [Concomitant]
     Dosage: UNK
     Dates: start: 20091217
  3. ZOCOR [Concomitant]
     Dosage: UNK
     Dates: start: 20091217
  4. STOMATOLOGICALS, MOUTH PREPARATIONS [Concomitant]
     Dosage: UNK
     Dates: start: 20100503
  5. COMPAZINE [Concomitant]
     Dosage: UNK
     Dates: start: 20100503
  6. PRILOSEC [Concomitant]
     Dosage: UNK
     Dates: start: 20100415
  7. ATENOLOL [Concomitant]
     Dosage: UNK
     Dates: start: 20100119, end: 20100407

REACTIONS (7)
  - ANAEMIA [None]
  - CHOLECYSTITIS ACUTE [None]
  - HYPERGLYCAEMIA [None]
  - HYPOCALCAEMIA [None]
  - HYPOKALAEMIA [None]
  - SEPTIC SHOCK [None]
  - THROMBOCYTOPENIA [None]
